FAERS Safety Report 11591454 (Version 1)
Quarter: 2015Q4

REPORT INFORMATION
  Report Type: Spontaneous
  Country: DE (occurrence: DE)
  Receive Date: 20151005
  Receipt Date: 20151005
  Transmission Date: 20160304
  Serious: No
  Sender: FDA-Public Use
  Company Number: DE-NOVEN PHARMACEUTICALS, INC.-14DE010272

PATIENT
  Sex: Female

DRUGS (1)
  1. COMBIPATCH [Suspect]
     Active Substance: ESTRADIOL\NORETHINDRONE ACETATE
     Indication: PRODUCT USED FOR UNKNOWN INDICATION
     Dosage: 50MCG/520MCG/DAY, UNK
     Route: 062

REACTIONS (5)
  - Application site pain [Unknown]
  - Product quality issue [Unknown]
  - Application site reaction [Unknown]
  - Application site erythema [Unknown]
  - Application site irritation [Unknown]
